FAERS Safety Report 5463939-4 (Version None)
Quarter: 2007Q3

REPORT INFORMATION
  Report Type: 
  Country: None (occurrence: None)
  Receive Date: 20070921
  Receipt Date: 20070816
  Transmission Date: 20080115
  Serious: No
  Sender: FDA-Public Use
  Company Number: A0671187A

PATIENT
  Age: 33 Year
  Sex: Female

DRUGS (3)
  1. AVANDARYL [Suspect]
     Dosage: 1MG TWICE PER DAY
     Route: 048
     Dates: start: 20070815
  2. ATENOLOL [Concomitant]
  3. GLUCOPHAGE [Concomitant]

REACTIONS (1)
  - HEADACHE [None]
